FAERS Safety Report 13904914 (Version 2)
Quarter: 2018Q3

REPORT INFORMATION
  Report Type: Report from Study
  Country: DE (occurrence: DE)
  Receive Date: 20170825
  Receipt Date: 20180723
  Transmission Date: 20181010
  Serious: Yes (Hospitalization)
  Sender: FDA-Public Use
  Company Number: DE-ROCHE-1983849

PATIENT

DRUGS (15)
  1. ADALIMUMAB [Concomitant]
     Active Substance: ADALIMUMAB
     Dosage: DAILY DOSE: 40 MG MILLGRAM(S) EVERY 2 WEEKS
     Route: 065
  2. TOCILIZUMAB. [Suspect]
     Active Substance: TOCILIZUMAB
     Dosage: VISIT T12
     Route: 064
     Dates: start: 201307
  3. ETANERCEPT [Concomitant]
     Active Substance: ETANERCEPT
     Dosage: DAILY DOSE: 50 MG MILLGRAM(S) EVERY WEEKS
     Route: 065
     Dates: start: 2006
  4. ETANERCEPT [Concomitant]
     Active Substance: ETANERCEPT
     Dosage: DAILY DOSE: 25 MG MILLGRAM(S) EVERY WEEKS
     Route: 065
  5. ETANERCEPT [Concomitant]
     Active Substance: ETANERCEPT
     Route: 065
  6. ETANERCEPT [Concomitant]
     Active Substance: ETANERCEPT
     Route: 065
  7. ETANERCEPT [Concomitant]
     Active Substance: ETANERCEPT
     Dosage: DAILY DOSE: 50 MG MILLGRAM(S) EVERY WEEKS
     Route: 065
     Dates: start: 2006
  8. TOCILIZUMAB. [Suspect]
     Active Substance: TOCILIZUMAB
     Indication: PRODUCT USED FOR UNKNOWN INDICATION
     Dosage: VISIT T11
     Route: 064
     Dates: start: 201307
  9. ETANERCEPT [Concomitant]
     Active Substance: ETANERCEPT
     Dosage: DAILY DOSE: 25 MG MILLGRAM(S) EVERY WEEKS
     Route: 065
  10. ETANERCEPT [Concomitant]
     Active Substance: ETANERCEPT
     Dosage: DAILY DOSE: 50 MG MILLGRAM(S) EVERY WEEKS
     Route: 065
  11. ETANERCEPT [Concomitant]
     Active Substance: ETANERCEPT
     Dosage: DAILY DOSE: 25 MG MILLGRAM(S) EVERY WEEKS
     Route: 065
     Dates: end: 201206
  12. ADALIMUMAB [Concomitant]
     Active Substance: ADALIMUMAB
     Dosage: DAILY DOSE: 40 MG MILLGRAM(S) EVERY 2 WEEKS
     Route: 065
     Dates: start: 201210, end: 201306
  13. ETANERCEPT [Concomitant]
     Active Substance: ETANERCEPT
     Dosage: DAILY DOSE: 50 MG MILLGRAM(S) EVERY WEEKS
     Route: 065
     Dates: start: 2006
  14. TOCILIZUMAB. [Suspect]
     Active Substance: TOCILIZUMAB
     Dosage: VISIT T13
     Route: 064
     Dates: start: 20141119
  15. ADALIMUMAB [Concomitant]
     Active Substance: ADALIMUMAB
     Dosage: DAILY DOSE: 40 MG MILLGRAM(S) EVERY 2 WEEKS
     Route: 065
     Dates: start: 201210, end: 201306

REACTIONS (2)
  - Large for dates baby [Unknown]
  - Foetal exposure during pregnancy [Unknown]

NARRATIVE: CASE EVENT DATE: 20150804
